FAERS Safety Report 25118518 (Version 1)
Quarter: 2025Q1

REPORT INFORMATION
  Report Type: Spontaneous
  Country: FR (occurrence: FR)
  Receive Date: 20250325
  Receipt Date: 20250325
  Transmission Date: 20250409
  Serious: Yes (Other)
  Sender: AMGEN
  Company Number: FR-AMGEN-FRASP2025050521

PATIENT
  Age: 16 Year
  Sex: Female

DRUGS (18)
  1. ADALIMUMAB [Suspect]
     Active Substance: ADALIMUMAB
     Indication: PSTPIP1-associated myeloid-related proteinaemia inflammatory syndrome
     Dosage: 24 MILLIGRAM/SQ. METER, Q2WK
     Route: 058
  2. FILGRASTIM [Suspect]
     Active Substance: FILGRASTIM
     Indication: Neutropenia
     Route: 065
  3. FILGRASTIM [Suspect]
     Active Substance: FILGRASTIM
     Indication: PSTPIP1-associated myeloid-related proteinaemia inflammatory syndrome
  4. USTEKINUMAB [Suspect]
     Active Substance: USTEKINUMAB
     Indication: PSTPIP1-associated myeloid-related proteinaemia inflammatory syndrome
     Dosage: 2 MILLIGRAM/KILOGRAM, Q2WK
     Route: 058
  5. TOCILIZUMAB [Suspect]
     Active Substance: TOCILIZUMAB
     Indication: PSTPIP1-associated myeloid-related proteinaemia inflammatory syndrome
     Dosage: 12 MILLIGRAM/SQ. METER, Q2WK
     Route: 040
  6. ETANERCEPT [Suspect]
     Active Substance: ETANERCEPT
     Indication: PSTPIP1-associated myeloid-related proteinaemia inflammatory syndrome
     Dosage: 0.8 MILLIGRAM/KILOGRAM, QWK
     Route: 058
  7. ANAKINRA [Suspect]
     Active Substance: ANAKINRA
     Indication: PSTPIP1-associated myeloid-related proteinaemia inflammatory syndrome
     Dosage: 2 MILLIGRAM/KILOGRAM, QD
     Route: 058
  8. INFLIXIMAB [Suspect]
     Active Substance: INFLIXIMAB
     Indication: PSTPIP1-associated myeloid-related proteinaemia inflammatory syndrome
     Dosage: 6 MILLIGRAM/KILOGRAM, Q4WK
     Route: 040
  9. GOLIMUMAB [Suspect]
     Active Substance: GOLIMUMAB
     Indication: PSTPIP1-associated myeloid-related proteinaemia inflammatory syndrome
     Dosage: 5 MILLIGRAM/KILOGRAM, Q4WK
     Route: 058
  10. Interleukin-1 beta [Concomitant]
     Indication: PSTPIP1-associated myeloid-related proteinaemia inflammatory syndrome
     Route: 065
  11. CANAKINUMAB [Concomitant]
     Active Substance: CANAKINUMAB
     Dosage: 10 MILLIGRAM/KILOGRAM, Q4WK
     Route: 058
  12. CANAKINUMAB [Concomitant]
     Active Substance: CANAKINUMAB
     Dosage: 10 MILLIGRAM/KILOGRAM, Q3WK
     Route: 058
  13. CYCLOSPORINE [Concomitant]
     Active Substance: CYCLOSPORINE
     Indication: Prophylaxis
     Route: 065
  14. TREOSULFAN [Concomitant]
     Active Substance: TREOSULFAN
     Route: 065
  15. THIOTEPA [Concomitant]
     Active Substance: THIOTEPA
     Route: 065
  16. FLUDARABINE [Concomitant]
     Active Substance: FLUDARABINE PHOSPHATE
     Route: 065
  17. ALEMTUZUMAB [Concomitant]
     Active Substance: ALEMTUZUMAB
     Route: 065
  18. RITUXIMAB [Concomitant]
     Active Substance: RITUXIMAB

REACTIONS (4)
  - PSTPIP1-associated myeloid-related proteinaemia inflammatory syndrome [Unknown]
  - Adverse event [Unknown]
  - Therapeutic product effect incomplete [Unknown]
  - Off label use [Unknown]
